FAERS Safety Report 16664580 (Version 11)
Quarter: 2021Q2

REPORT INFORMATION
  Report Type: Report from Study
  Country: None (occurrence: NL)
  Receive Date: 20190802
  Receipt Date: 20210601
  Transmission Date: 20210716
  Serious: Yes (Other)
  Sender: FDA-Public Use
  Company Number: NL-ABBVIE-19S-114-2776560-00

PATIENT
  Age: 74 Year
  Sex: Female
  Weight: 89.5 kg

DRUGS (5)
  1. MADOPAR DISPER [Concomitant]
     Active Substance: BENSERAZIDE HYDROCHLORIDE\LEVODOPA
     Indication: PRODUCT USED FOR UNKNOWN INDICATION
     Dosage: BETWEEN 02:30 AND 03:30 AT NIGHT.?WHEN NEEDED AT NIGHT.
  2. DUODOPA [Suspect]
     Active Substance: CARBIDOPA\LEVODOPA
     Indication: PARKINSON^S DISEASE
     Dosage: CONTINUOUS DOSE 3.7
     Route: 050
  3. DUODOPA [Suspect]
     Active Substance: CARBIDOPA\LEVODOPA
     Dosage: MD: 10.7ML ; CD: 3.8ML/H ; ED: 2.0ML.?FROM 06:15 TO 22:45.
     Route: 050
  4. DUODOPA [Suspect]
     Active Substance: CARBIDOPA\LEVODOPA
     Dosage: MD: 10.7, CD: 3.8, ED: 2.0
     Route: 050
     Dates: end: 201907
  5. DUODOPA [Suspect]
     Active Substance: CARBIDOPA\LEVODOPA
     Dosage: MD: 10.7ML, CD: 4.0ML/H, ED: 2.0ML
     Route: 050
     Dates: start: 20190724, end: 20190724

REACTIONS (58)
  - Neuralgia [Not Recovered/Not Resolved]
  - Frequent bowel movements [Recovered/Resolved]
  - Discomfort [Recovered/Resolved]
  - Muscular weakness [Not Recovered/Not Resolved]
  - Cognitive disorder [Not Recovered/Not Resolved]
  - Gait disturbance [Not Recovered/Not Resolved]
  - Fall [Recovering/Resolving]
  - On and off phenomenon [Recovered/Resolved]
  - Dizziness [Not Recovered/Not Resolved]
  - Memory impairment [Recovered/Resolved]
  - Decreased activity [Not Recovered/Not Resolved]
  - Weight fluctuation [Recovered/Resolved]
  - Emotional disorder [Not Recovered/Not Resolved]
  - Movement disorder [Unknown]
  - Depressed mood [Unknown]
  - Dyskinesia [Not Recovered/Not Resolved]
  - Tremor [Not Recovered/Not Resolved]
  - Dyspnoea [Recovered/Resolved]
  - Stoma site erythema [Unknown]
  - Device kink [Unknown]
  - Restlessness [Not Recovered/Not Resolved]
  - Pain in extremity [Not Recovered/Not Resolved]
  - Musculoskeletal stiffness [Unknown]
  - Muscle spasms [Not Recovered/Not Resolved]
  - Hallucination [Recovered/Resolved]
  - Therapeutic product effect variable [Not Recovered/Not Resolved]
  - Excessive granulation tissue [Not Recovered/Not Resolved]
  - Speech disorder [Recovered/Resolved]
  - Medical device site injury [Unknown]
  - Feeling abnormal [Not Recovered/Not Resolved]
  - Freezing phenomenon [Not Recovered/Not Resolved]
  - Therapeutic product effect incomplete [Recovered/Resolved]
  - Hallucination [Unknown]
  - Device power source issue [Unknown]
  - Unresponsive to stimuli [Not Recovered/Not Resolved]
  - Defiant behaviour [Not Recovered/Not Resolved]
  - Nausea [Recovered/Resolved]
  - Parkinson^s disease [Recovered/Resolved]
  - Medical device site dryness [Unknown]
  - Gastric disorder [Not Recovered/Not Resolved]
  - Adverse drug reaction [Unknown]
  - Abnormal faeces [Recovered/Resolved]
  - Malaise [Recovered/Resolved]
  - Fatigue [Not Recovered/Not Resolved]
  - Dyspepsia [Not Recovered/Not Resolved]
  - Incorrect product administration duration [Unknown]
  - Unresponsive to stimuli [Recovered/Resolved]
  - Mood swings [Not Recovered/Not Resolved]
  - Head discomfort [Not Recovered/Not Resolved]
  - Hypokinesia [Unknown]
  - Obsessive-compulsive disorder [Not Recovered/Not Resolved]
  - Drug ineffective [Not Recovered/Not Resolved]
  - Decreased appetite [Recovered/Resolved]
  - Confusional state [Not Recovered/Not Resolved]
  - On and off phenomenon [Not Recovered/Not Resolved]
  - Anosognosia [Unknown]
  - Somnolence [Not Recovered/Not Resolved]
  - Product use complaint [Unknown]

NARRATIVE: CASE EVENT DATE: 20190722
